FAERS Safety Report 7121630-2 (Version None)
Quarter: 2010Q4

REPORT INFORMATION
  Report Type: 
  Country: None (occurrence: None)
  Receive Date: 20101124
  Receipt Date: 20101112
  Transmission Date: 20110411
  Serious: Yes (Other)
  Sender: FDA-Public Use
  Company Number: US-PFIZER INC-2010149310

PATIENT
  Sex: Female
  Weight: 63.5 kg

DRUGS (3)
  1. PREMPRO [Suspect]
     Indication: HOT FLUSH
     Dosage: UNK
     Dates: start: 20020101, end: 20101109
  2. BENAZEPRIL [Concomitant]
     Indication: HYPERTENSION
     Dosage: 5 MG, UNK
  3. EZETIMIBE [Concomitant]
     Indication: BLOOD CHOLESTEROL INCREASED

REACTIONS (1)
  - VAGINAL HAEMORRHAGE [None]
